FAERS Safety Report 8127315-8 (Version None)
Quarter: 2012Q1

REPORT INFORMATION
  Report Type: 
  Country: None (occurrence: None)
  Receive Date: 20120210
  Receipt Date: 20120131
  Transmission Date: 20120608
  Serious: Yes (Life-Threatening, Hospitalization)
  Sender: FDA-Public Use
  Company Number: US-ELI_LILLY_AND_COMPANY-US201202000310

PATIENT
  Sex: Female

DRUGS (2)
  1. FORTEO [Suspect]
     Dosage: UNK, UNKNOWN
     Route: 065
  2. DIURETICS [Concomitant]
     Dosage: UNK, UNKNOWN

REACTIONS (5)
  - FEELING ABNORMAL [None]
  - HYPERTENSION [None]
  - CONSTIPATION [None]
  - BLOOD POTASSIUM DECREASED [None]
  - OEDEMA [None]
